FAERS Safety Report 23262142 (Version 6)
Quarter: 2024Q1

REPORT INFORMATION
  Report Type: Spontaneous
  Country: US (occurrence: US)
  Receive Date: 20231205
  Receipt Date: 20240110
  Transmission Date: 20240409
  Serious: No
  Sender: FDA-Public Use
  Company Number: US-PFIZER INC-PV202300188061

PATIENT
  Age: 8 Month
  Sex: Female
  Weight: 7.26 kg

DRUGS (1)
  1. SOMATROPIN [Suspect]
     Active Substance: SOMATROPIN
     Indication: Prader-Willi syndrome
     Dosage: 0.4 MG, 1X/DAY
     Dates: start: 2023

REACTIONS (2)
  - Device malfunction [Unknown]
  - Device leakage [Unknown]
